FAERS Safety Report 4325733-7 (Version None)
Quarter: 2004Q1

REPORT INFORMATION
  Report Type: 
  Country: None (occurrence: None)
  Receive Date: 20040324
  Receipt Date: 20040312
  Transmission Date: 20041129
  Serious: Yes (Other)
  Sender: FDA-Public Use
  Company Number: US-JNJFOC-20040204903

PATIENT
  Age: 85 Year
  Sex: Female

DRUGS (9)
  1. INFLIXIMAB (INFLIXIMAB, RECOMBINANT) LYOPHILIZED POWDER [Suspect]
     Indication: RHEUMATOID ARTHRITIS
     Dosage: INTRAVENOUS
     Route: 042
     Dates: start: 20010112, end: 20030304
  2. AMITRIPTYLINE HCL [Concomitant]
  3. TYLENOL [Concomitant]
  4. FOLIC ACID [Concomitant]
  5. ALLEGRA [Concomitant]
  6. MULTIVITAMIN (MULTIVITAMINS) [Concomitant]
  7. TUMS (CALCIUM CARBONATE) TABLETS [Concomitant]
  8. DIDRONEL [Concomitant]
  9. TYLENOL W/ CODEINE NO. 3 [Concomitant]

REACTIONS (1)
  - NON-HODGKIN'S LYMPHOMA STAGE I [None]
